FAERS Safety Report 9327132 (Version 2)
Quarter: 2013Q2

REPORT INFORMATION
  Report Type: Spontaneous
  Country: US (occurrence: US)
  Receive Date: 20130604
  Receipt Date: 20130619
  Transmission Date: 20140414
  Serious: No
  Sender: FDA-Public Use
  Company Number: US-PFIZER INC-2013169159

PATIENT
  Age: 71 Year
  Sex: Female
  Weight: 73.02 kg

DRUGS (11)
  1. LYRICA [Suspect]
     Indication: FIBROMYALGIA
     Dosage: 50 MG, 2X/DAY
     Route: 048
     Dates: start: 20130310
  2. ANASTROZOLE [Concomitant]
     Dosage: 1 MG, UNK
  3. LOSARTAN/HYDROCHLOROTHIAZIDE [Concomitant]
     Dosage: UNK
  4. LEVOXYL [Concomitant]
     Dosage: UNK
  5. METFORMIN [Concomitant]
     Dosage: UNK
  6. AMLODIPINE [Concomitant]
     Dosage: UNK
  7. SIMVASTATIN [Concomitant]
     Dosage: UNK
  8. METOPROLOL [Concomitant]
     Dosage: UNK
  9. ASPIRIN [Concomitant]
     Dosage: 81 MG, UNK
  10. CALTRATE [Concomitant]
     Dosage: UNK
  11. VITAMIN B12 [Concomitant]
     Dosage: UNK

REACTIONS (1)
  - Local swelling [Not Recovered/Not Resolved]
